FAERS Safety Report 14474907 (Version 3)
Quarter: 2019Q4

REPORT INFORMATION
  Report Type: Spontaneous
  Country: US (occurrence: US)
  Receive Date: 20180201
  Receipt Date: 20191227
  Transmission Date: 20200122
  Serious: Yes (Other)
  Sender: FDA-Public Use
  Company Number: US-PFIZER INC-2018045130

PATIENT
  Age: 57 Year
  Sex: Male

DRUGS (11)
  1. NAPROXEN. [Concomitant]
     Active Substance: NAPROXEN
     Indication: PAIN
     Dosage: UNK
     Dates: start: 20091106
  2. METOPROLOL-HYDROCHLOROTHIAZIDE [Concomitant]
     Indication: DIURETIC THERAPY
     Dosage: UNK
     Dates: start: 20090327
  3. VIAGRA [Suspect]
     Active Substance: SILDENAFIL CITRATE
     Dosage: 100 MG, AS NEEDED
     Route: 048
     Dates: start: 20080126, end: 20100308
  4. VIAGRA [Suspect]
     Active Substance: SILDENAFIL CITRATE
     Dosage: 100 MG, AS NEEDED
     Route: 048
     Dates: start: 20100717, end: 20110609
  5. LOTREL [Concomitant]
     Active Substance: AMLODIPINE BESYLATE\BENAZEPRIL HYDROCHLORIDE
     Indication: HYPERTENSION
     Dosage: UNK
     Dates: start: 20091102
  6. MELOXICAM. [Concomitant]
     Active Substance: MELOXICAM
     Indication: PAIN
     Dosage: UNK
     Dates: start: 20090407
  7. HUMIRA [Concomitant]
     Active Substance: ADALIMUMAB
     Indication: ARTHRITIS
     Dosage: UNK
     Dates: start: 20090814
  8. VIAGRA [Suspect]
     Active Substance: SILDENAFIL CITRATE
     Indication: ERECTILE DYSFUNCTION
     Dosage: 100 MG, AS NEEDED
     Route: 048
     Dates: start: 20060302, end: 20070113
  9. FIBERCON [Concomitant]
     Active Substance: CALCIUM POLYCARBOPHIL
     Indication: CONSTIPATION
     Dosage: UNK
     Dates: start: 20090327
  10. ANUSOL NOS [Concomitant]
     Active Substance: BALSAM PERU\BENZYL BENZOATE\BISMUTH HYDROXIDE\BISMUTH SUBGALLATE\HYDROCORTISONE ACETATE\ZINC OXIDE
     Indication: PAIN
     Dosage: UNK
     Dates: start: 20090327
  11. PRILOSEC [Concomitant]
     Active Substance: OMEPRAZOLE MAGNESIUM
     Indication: DYSPEPSIA
     Dosage: UNK
     Dates: start: 20090928

REACTIONS (1)
  - Malignant melanoma [Unknown]

NARRATIVE: CASE EVENT DATE: 20150602
